FAERS Safety Report 9565741 (Version 2)
Quarter: 2013Q4

REPORT INFORMATION
  Report Type: Spontaneous
  Country: US (occurrence: US)
  Receive Date: 20130930
  Receipt Date: 20131014
  Transmission Date: 20140711
  Serious: Yes (Other)
  Sender: FDA-Public Use
  Company Number: US-PFIZER INC-2013278411

PATIENT
  Age: 50 Year
  Sex: Female
  Weight: 122 kg

DRUGS (8)
  1. LYRICA [Suspect]
     Indication: FIBROMYALGIA
     Dosage: 150 MG, 2X/DAY
     Dates: start: 201103, end: 201105
  2. LYRICA [Suspect]
     Indication: NEURALGIA
     Dosage: 75 MG, 3X/DAY
     Route: 048
  3. LYRICA [Suspect]
     Indication: PAIN
  4. OXYCODONE HYDROCHLORIDE [Suspect]
     Indication: NEURALGIA
     Dosage: 15 MG, AS NEEDED
     Dates: start: 2011
  5. OXYCONTIN [Suspect]
     Indication: PROCEDURAL PAIN
     Dosage: UNK
     Dates: start: 201101
  6. ROXICODONE [Concomitant]
     Dosage: UNK
  7. METOPROLOL [Concomitant]
     Dosage: UNK
  8. DICLOFENAC [Concomitant]
     Dosage: UNK

REACTIONS (11)
  - Intervertebral disc degeneration [Unknown]
  - Nervous system disorder [Unknown]
  - Bone disorder [Unknown]
  - Feeling abnormal [Unknown]
  - Hypoaesthesia [Not Recovered/Not Resolved]
  - Pain in extremity [Not Recovered/Not Resolved]
  - Arthralgia [Unknown]
  - Pain in extremity [Unknown]
  - Drug ineffective [Unknown]
  - Depression [Unknown]
  - Stress [Unknown]
